FAERS Safety Report 6117961-5 (Version None)
Quarter: 2009Q1

REPORT INFORMATION
  Report Type: 
  Country: None (occurrence: None)
  Receive Date: 20090314
  Receipt Date: 20090203
  Transmission Date: 20090719
  Serious: No
  Sender: FDA-Public Use
  Company Number: US-ABBOTT-09P-163-0501530-00

PATIENT
  Sex: Female
  Weight: 60.836 kg

DRUGS (1)
  1. HUMIRA [Suspect]
     Indication: COLITIS ULCERATIVE
     Dosage: DAY 1
     Dates: start: 20090119

REACTIONS (3)
  - ARTHRALGIA [None]
  - COUGH [None]
  - NAUSEA [None]
